FAERS Safety Report 16068358 (Version 1)
Quarter: 2019Q1

REPORT INFORMATION
  Report Type: Spontaneous
  Country: US (occurrence: US)
  Receive Date: 20190313
  Receipt Date: 20190313
  Transmission Date: 20190418
  Serious: No
  Sender: FDA-Public Use
  Company Number: US-TAKEDA-2019TUS011859

PATIENT
  Sex: Female

DRUGS (1)
  1. PREVACID [Suspect]
     Active Substance: LANSOPRAZOLE
     Indication: GASTROOESOPHAGEAL REFLUX DISEASE
     Dosage: 15 MILLIGRAM, BID
     Route: 065
     Dates: start: 1990

REACTIONS (6)
  - Asthma [Unknown]
  - Drug effect decreased [Unknown]
  - Incorrect product administration duration [Unknown]
  - Tongue erythema [Not Recovered/Not Resolved]
  - Dysgeusia [Recovered/Resolved]
  - Respiratory tract congestion [Unknown]
